FAERS Safety Report 21386294 (Version 1)
Quarter: 2022Q3

REPORT INFORMATION
  Report Type: Report from Study
  Country: CA (occurrence: CA)
  Receive Date: 20220928
  Receipt Date: 20220928
  Transmission Date: 20221027
  Serious: Yes (Hospitalization)
  Sender: FDA-Public Use
  Company Number: CA-MYLANLABS-2022M1088224

PATIENT
  Age: 29 Year
  Sex: Female

DRUGS (1)
  1. HULIO [Suspect]
     Active Substance: ADALIMUMAB-FKJP
     Indication: Psoriatic arthropathy
     Dosage: 40 MILLIGRAM, QW, (WEEKLY)
     Route: 058
     Dates: start: 20220823

REACTIONS (5)
  - Hospitalisation [Recovered/Resolved]
  - Off label use [Unknown]
  - Product quality issue [Unknown]
  - Product availability issue [Unknown]
  - Product dose omission issue [Unknown]
